FAERS Safety Report 7141746-4 (Version None)
Quarter: 2010Q4

REPORT INFORMATION
  Report Type: 
  Country: None (occurrence: None)
  Receive Date: 20101207
  Receipt Date: 20101126
  Transmission Date: 20110411
  Serious: Yes (Hospitalization, Other)
  Sender: FDA-Public Use
  Company Number: JP-AMGEN-JPNCT2010004161

PATIENT

DRUGS (2)
  1. DENOSUMAB [Suspect]
     Indication: OSTEOPOROSIS
     Dosage: DENOSUMAB 60MG OR PLACEBO
     Route: 058
     Dates: start: 20090618
  2. NEW CALCICHEW D3 [Concomitant]
     Indication: OSTEOPOROSIS
     Route: 048
     Dates: start: 20090525

REACTIONS (1)
  - VARICOSE VEIN [None]
